FAERS Safety Report 21057434 (Version 2)
Quarter: 2022Q3

REPORT INFORMATION
  Report Type: Spontaneous
  Country: IL (occurrence: IL)
  Receive Date: 20220708
  Receipt Date: 20220729
  Transmission Date: 20221026
  Serious: Yes (Other)
  Sender: FDA-Public Use
  Company Number: IL-TEVAIL-2022-IL-2052056

PATIENT
  Age: 45 Year
  Sex: Female

DRUGS (1)
  1. COPAXONE [Suspect]
     Active Substance: GLATIRAMER ACETATE
     Indication: Multiple sclerosis
     Dosage: COPAXONE 40
     Route: 065
     Dates: start: 2020

REACTIONS (2)
  - Bowen^s disease [Unknown]
  - Skin lesion [Unknown]
